FAERS Safety Report 12822856 (Version 2)
Quarter: 2016Q4

REPORT INFORMATION
  Report Type: Spontaneous
  Country: US (occurrence: US)
  Receive Date: 20161007
  Receipt Date: 20161122
  Transmission Date: 20170207
  Serious: Yes (Other)
  Sender: FDA-Public Use
  Company Number: US-JNJFOC-20161004454

PATIENT
  Sex: Female

DRUGS (2)
  1. LEVAQUIN [Suspect]
     Active Substance: LEVOFLOXACIN
     Indication: PRODUCT USED FOR UNKNOWN INDICATION
     Route: 048
     Dates: start: 2000
  2. LEVAQUIN [Suspect]
     Active Substance: LEVOFLOXACIN
     Indication: PRODUCT USED FOR UNKNOWN INDICATION
     Route: 048
     Dates: start: 2010

REACTIONS (7)
  - Visual impairment [Unknown]
  - Skin disorder [Unknown]
  - Neuropathy peripheral [Unknown]
  - Cardiovascular disorder [Unknown]
  - Musculoskeletal disorder [Unknown]
  - Mental disorder [Unknown]
  - Hypoacusis [Unknown]

NARRATIVE: CASE EVENT DATE: 2000
